FAERS Safety Report 20512662 (Version 1)
Quarter: 2022Q1

REPORT INFORMATION
  Report Type: Spontaneous
  Country: US (occurrence: None)
  Receive Date: 20220224
  Receipt Date: 20220224
  Transmission Date: 20220423
  Serious: Yes (Hospitalization, Disabling)
  Sender: FDA-Public Use
  Company Number: None

PATIENT
  Age: 23 Year
  Sex: Female
  Weight: 58.5 kg

DRUGS (3)
  1. CIPROFLOXACIN [Suspect]
     Active Substance: CIPROFLOXACIN
     Indication: Kidney infection
     Dosage: OTHER QUANTITY : 1 TABLET(S);?FREQUENCY : TWICE A DAY;?
     Route: 048
     Dates: start: 20220216, end: 20220220
  2. CIPROFLOXACIN [Concomitant]
     Active Substance: CIPROFLOXACIN
  3. VITAMINS [Concomitant]
     Active Substance: VITAMINS

REACTIONS (19)
  - Toxicity to various agents [None]
  - Nausea [None]
  - Myalgia [None]
  - Kidney infection [None]
  - Dysphagia [None]
  - Arthralgia [None]
  - Arthralgia [None]
  - Joint stiffness [None]
  - Neuralgia [None]
  - Arthralgia [None]
  - Pain in jaw [None]
  - Arthralgia [None]
  - Arthralgia [None]
  - Arthralgia [None]
  - Pain in extremity [None]
  - Headache [None]
  - Muscle spasms [None]
  - Insomnia [None]
  - Gait disturbance [None]

NARRATIVE: CASE EVENT DATE: 20220220
